FAERS Safety Report 7838416-3 (Version None)
Quarter: 2011Q4

REPORT INFORMATION
  Report Type: 
  Country: None (occurrence: None)
  Receive Date: 20111024
  Receipt Date: 20111019
  Transmission Date: 20120403
  Serious: Yes (Hospitalization, Other)
  Sender: FDA-Public Use
  Company Number: CN-MERCK-1110CHN00154

PATIENT
  Age: 80 Year
  Sex: Male
  Weight: 90 kg

DRUGS (2)
  1. PROSCAR [Suspect]
     Indication: BENIGN PROSTATIC HYPERPLASIA
     Route: 048
     Dates: start: 20110301
  2. TAMSULOSIN HYDROCHLORIDE [Concomitant]
     Indication: BENIGN PROSTATIC HYPERPLASIA
     Route: 048
     Dates: start: 20110301

REACTIONS (2)
  - EYE DISORDER [None]
  - PARALYSIS [None]
